FAERS Safety Report 5674300-1 (Version None)
Quarter: 2008Q1

REPORT INFORMATION
  Report Type: 
  Country: None (occurrence: None)
  Receive Date: 20080320
  Receipt Date: 20080307
  Transmission Date: 20080703
  Serious: Yes (Hospitalization)
  Sender: FDA-Public Use
  Company Number: US-BAYER-200811424NA

PATIENT
  Age: 49 Year
  Sex: Male

DRUGS (2)
  1. AVELOX [Suspect]
     Indication: ACUTE SINUSITIS
     Dosage: TOTAL DAILY DOSE: 400 MG  UNIT DOSE: 400 MG
     Route: 048
     Dates: start: 20071220, end: 20071227
  2. CIPRO [Suspect]
     Indication: DRUG USE FOR UNKNOWN INDICATION
     Route: 048
     Dates: start: 20071201

REACTIONS (6)
  - ABDOMINAL DISCOMFORT [None]
  - ACUTE SINUSITIS [None]
  - DIZZINESS [None]
  - HYPOXIA [None]
  - LYMPHADENOPATHY [None]
  - SYNCOPE [None]
